FAERS Safety Report 4601003-4 (Version None)
Quarter: 2005Q1

REPORT INFORMATION
  Report Type: 
  Country: None (occurrence: None)
  Receive Date: 20050307
  Receipt Date: 20050307
  Transmission Date: 20050727
  Serious: No
  Sender: FDA-Public Use
  Company Number: None

PATIENT

DRUGS (1)
  1. FENTANYL CITRATE AND 1% BUPIVACAINE [Suspect]
     Indication: ANALGESIC EFFECT
     Dosage: 12 MCG/HR EPIDURAL INFUSION
     Route: 008
     Dates: start: 20080301

REACTIONS (1)
  - MEDICATION ERROR [None]
